FAERS Safety Report 21882337 (Version 1)
Quarter: 2023Q1

REPORT INFORMATION
  Report Type: Report from Study
  Country: US (occurrence: US)
  Receive Date: 20230119
  Receipt Date: 20230119
  Transmission Date: 20230418
  Serious: No
  Sender: FDA-Public Use
  Company Number: US-ABBVIE-4241972

PATIENT

DRUGS (1)
  1. SKYRIZI [Suspect]
     Active Substance: RISANKIZUMAB-RZAA
     Indication: Psoriasis
     Dosage: WEEK 0, 4 AND EVERY 12 WEEKS THEREAFTER?FORM STRENGTH: 150MILLIGRAM/MILLILITERS
     Route: 058
     Dates: start: 20221104

REACTIONS (2)
  - General physical health deterioration [Unknown]
  - Psoriasis [Unknown]
